FAERS Safety Report 15834549 (Version 1)
Quarter: 2019Q1

REPORT INFORMATION
  Report Type: Spontaneous
  Country: US (occurrence: US)
  Receive Date: 20190116
  Receipt Date: 20190116
  Transmission Date: 20190417
  Serious: Yes (Life-Threatening, Hospitalization, Other)
  Sender: FDA-Public Use
  Company Number: US-PFIZER INC-2017278039

PATIENT
  Age: 77 Year
  Sex: Female

DRUGS (1)
  1. TOVIAZ [Suspect]
     Active Substance: FESOTERODINE FUMARATE
     Dosage: UNK

REACTIONS (12)
  - Pneumonia [Unknown]
  - Vomiting [Unknown]
  - Malaise [Unknown]
  - Pyrexia [Unknown]
  - Influenza [Unknown]
  - Dehydration [Unknown]
  - Ear disorder [Unknown]
  - Feeling abnormal [Unknown]
  - Somnolence [Unknown]
  - Condition aggravated [Unknown]
  - Colitis ulcerative [Unknown]
  - Diarrhoea [Unknown]
